FAERS Safety Report 5474452-2 (Version None)
Quarter: 2007Q4

REPORT INFORMATION
  Report Type: 
  Country: None (occurrence: None)
  Receive Date: 20071002
  Receipt Date: 20070928
  Transmission Date: 20080405
  Serious: Yes (Death, Hospitalization)
  Sender: FDA-Public Use
  Company Number: PHEH2007US11577

PATIENT
  Age: 54 Year
  Sex: Female

DRUGS (8)
  1. CYCLOSPORINE [Suspect]
     Indication: RENAL TRANSPLANT
     Dosage: 400 MG, QD
     Route: 048
     Dates: start: 20070612, end: 20070614
  2. CYCLOSPORINE [Suspect]
     Dosage: 200 MG, QD
     Route: 048
     Dates: start: 20070615, end: 20070625
  3. CYCLOSPORINE [Suspect]
     Dosage: 100 MG, QD
     Route: 048
     Dates: start: 20070626, end: 20070630
  4. MYCOPHENOLATE MOFETIL [Concomitant]
     Route: 048
     Dates: start: 20070610
  5. PREDNISONE [Concomitant]
     Route: 048
     Dates: start: 20070613
  6. VALCYTE [Concomitant]
     Dates: start: 20070612
  7. METOCLOPRAMIDE [Concomitant]
     Dosage: 30 MG, UNK
     Dates: start: 20070630
  8. METAMIZOL [Concomitant]
     Dates: start: 20070629

REACTIONS (15)
  - COMPLICATIONS OF TRANSPLANTED KIDNEY [None]
  - HAEMODIALYSIS [None]
  - HAEMODYNAMIC INSTABILITY [None]
  - HYPOTENSION [None]
  - INTUBATION [None]
  - KLEBSIELLA INFECTION [None]
  - MECHANICAL VENTILATION [None]
  - MULTI-ORGAN FAILURE [None]
  - POSTOPERATIVE WOUND INFECTION [None]
  - RENAL IMPAIRMENT [None]
  - RESPIRATORY FAILURE [None]
  - SEPTIC SHOCK [None]
  - SKIN NECROSIS [None]
  - URINE OUTPUT DECREASED [None]
  - WHITE BLOOD CELL COUNT DECREASED [None]
